FAERS Safety Report 22531656 (Version 1)
Quarter: 2023Q2

REPORT INFORMATION
  Report Type: Spontaneous
  Country: CN (occurrence: CN)
  Receive Date: 20230607
  Receipt Date: 20230607
  Transmission Date: 20230722
  Serious: Yes (Other)
  Sender: FDA-Public Use
  Company Number: None

PATIENT
  Age: 55 Year
  Sex: Female
  Weight: 90 kg

DRUGS (6)
  1. CYCLOPHOSPHAMIDE [Suspect]
     Active Substance: CYCLOPHOSPHAMIDE
     Indication: Bicytopenia
     Dosage: 1 G, 14 DAYS/TIME, QW, DILUTED WITH 500 ML OF SODIUM CHLORIDE, ROUTE OF ADMINISTRATION:  INTRA-PUMP
     Route: 050
     Dates: start: 20230426, end: 20230510
  2. SODIUM CHLORIDE [Suspect]
     Active Substance: SODIUM CHLORIDE
     Indication: Medication dilution
     Dosage: 500 ML, QW, 14 DAYS/TIME, USED TO DILUTE 1 G CYCLOPHOSPHAMIDE, ROUTE OF ADMINISTRATION:  INTRA-PUMP
     Route: 050
     Dates: start: 20230426, end: 20230510
  3. SODIUM CHLORIDE [Suspect]
     Active Substance: SODIUM CHLORIDE
     Dosage: 100 ML, QW, USED TO DILUTE 60 MG DAUNORUBICIN HYDROCHLORIDE, ROUTE OF ADMINISTRATION:  INTRA-PUMP IN
     Route: 050
     Dates: start: 20230426, end: 20230510
  4. SODIUM CHLORIDE [Suspect]
     Active Substance: SODIUM CHLORIDE
     Dosage: 60 ML, QW, USED TO DILUTE 2 MG VINCRISTINE SULFATE, ROUTE OF ADMINISTRATION:  INTRA-PUMP INJECTION
     Route: 050
     Dates: start: 20230426, end: 20230510
  5. DAUNORUBICIN HYDROCHLORIDE [Suspect]
     Active Substance: DAUNORUBICIN HYDROCHLORIDE
     Indication: Bicytopenia
     Dosage: 60 MG, QW, DILUTED WITH 100 ML OF SODIUM CHLORIDE, ROUTE OF ADMINISTRATION:  INTRA-PUMP INJECTION
     Route: 050
     Dates: start: 20230426, end: 20230510
  6. VINCRISTINE SULFATE [Suspect]
     Active Substance: VINCRISTINE SULFATE
     Indication: Bicytopenia
     Dosage: 2 MG, QW, DILUTED WITH 60 ML OF SODIUM CHLORIDE, ROUTE OF ADMINISTRATION:  INTRA-PUMP INJECTION
     Route: 050
     Dates: start: 20230426, end: 20230510

REACTIONS (2)
  - Myelosuppression [Recovering/Resolving]
  - Pancytopenia [Recovering/Resolving]

NARRATIVE: CASE EVENT DATE: 20230516
